FAERS Safety Report 9148946 (Version 1)
Quarter: 2013Q1

REPORT INFORMATION
  Report Type: Spontaneous
  Country: GB (occurrence: None)
  Receive Date: 20130130
  Receipt Date: 20130130
  Transmission Date: 20140127
  Serious: Yes (Other)
  Sender: FDA-Public Use
  Company Number: 2013MPI00015

PATIENT
  Age: 24 Year
  Sex: Female
  Weight: 52 kg

DRUGS (7)
  1. BRENTUXIMAB VEDOTIN (BRENTUXIMAB VEDOTIN) INJECTION [Suspect]
     Indication: HODGKIN^S DISEASE REFRACTORY
     Dosage: 1.8 MG/KG,  UNK,  INTRAVENOUS?12/14/2012  TO  01/02/2013
     Route: 042
     Dates: start: 20121214, end: 20130102
  2. ALLOPURINOL [Concomitant]
  3. CO-TRIMOXAZOLE (CO-TRIMOXAZOLE) [Concomitant]
  4. ACICLOVIR (ACICLOVIR SODIUM) [Concomitant]
  5. DALATEPARIN (DALTEPARIN) [Concomitant]
  6. BISOPROLOL (BISOPROLOL HEMLFUMARATE) [Concomitant]
  7. ITRACONAZOLE (ITRACONAZOLE) [Concomitant]

REACTIONS (5)
  - Hepatotoxicity [None]
  - Dermatitis bullous [None]
  - Hepatic enzyme increased [None]
  - Rash [None]
  - Pruritus [None]
